APPROVED DRUG PRODUCT: LOPRESSOR HCT
Active Ingredient: HYDROCHLOROTHIAZIDE; METOPROLOL TARTRATE
Strength: 25MG;50MG
Dosage Form/Route: TABLET;ORAL
Application: N018303 | Product #001 | TE Code: AB
Applicant: VALIDUS PHARMACEUTICALS LLC
Approved: Dec 31, 1984 | RLD: Yes | RS: No | Type: RX